APPROVED DRUG PRODUCT: PRAVASTATIN SODIUM
Active Ingredient: PRAVASTATIN SODIUM
Strength: 80MG
Dosage Form/Route: TABLET;ORAL
Application: A077904 | Product #004 | TE Code: AB
Applicant: CIPLA LTD
Approved: Mar 22, 2016 | RLD: No | RS: No | Type: RX